FAERS Safety Report 5465368-6 (Version None)
Quarter: 2007Q3

REPORT INFORMATION
  Report Type: 
  Country: None (occurrence: None)
  Receive Date: 20070920
  Receipt Date: 20070920
  Transmission Date: 20080115
  Serious: Yes (Other)
  Sender: FDA-Public Use
  Company Number: None

PATIENT
  Age: 63 Year
  Sex: Male
  Weight: 71.6683 kg

DRUGS (4)
  1. CORICIDIN HBP COUGH + COLD [Suspect]
     Indication: NASOPHARYNGITIS
     Dosage: 1 DF;ONCE;PO
     Route: 048
     Dates: start: 20070607
  2. CORICIDIN HBP COUGH + COLD [Suspect]
     Indication: NASOPHARYNGITIS
     Dosage: 1 DF;ONCE;PO
     Route: 048
     Dates: start: 20070608
  3. CORICIDIN HBP COUGH + COLD [Suspect]
     Indication: NASOPHARYNGITIS
     Dosage: 1 DF;ONCE;PO
     Route: 048
     Dates: start: 20070608
  4. BENICAR [Suspect]
     Indication: HYPERTENSION

REACTIONS (13)
  - ABDOMINAL PAIN UPPER [None]
  - ANGINA PECTORIS [None]
  - CHEST X-RAY ABNORMAL [None]
  - EXCORIATION [None]
  - FALL [None]
  - HAEMORRHAGE [None]
  - HEAD INJURY [None]
  - LOSS OF CONSCIOUSNESS [None]
  - LUNG DISORDER [None]
  - SKIN LACERATION [None]
  - SYNCOPE [None]
  - TOOTH INJURY [None]
  - TOOTH LOSS [None]
